FAERS Safety Report 8179802-4 (Version None)
Quarter: 2012Q1

REPORT INFORMATION
  Report Type: 
  Country: None (occurrence: None)
  Receive Date: 20120302
  Receipt Date: 20120223
  Transmission Date: 20120608
  Serious: Yes (Hospitalization)
  Sender: FDA-Public Use
  Company Number: US-BAYER-2011-083699

PATIENT
  Age: 18 Year
  Sex: Female
  Weight: 68.027 kg

DRUGS (2)
  1. ZOLOFT [Concomitant]
     Indication: DEPRESSION
     Dosage: 150 MG, QD
  2. YASMIN [Suspect]
     Indication: ACNE
     Dosage: UNK
     Dates: start: 20010723, end: 20021025

REACTIONS (8)
  - INJURY [None]
  - CHEST PAIN [None]
  - PAIN [None]
  - BACK PAIN [None]
  - HYPOAESTHESIA [None]
  - PULMONARY EMBOLISM [None]
  - EMOTIONAL DISTRESS [None]
  - DYSPNOEA [None]
